FAERS Safety Report 15571045 (Version 1)
Quarter: 2018Q4

REPORT INFORMATION
  Report Type: Spontaneous
  Country: ES (occurrence: ES)
  Receive Date: 20181031
  Receipt Date: 20181031
  Transmission Date: 20190205
  Serious: No
  Sender: FDA-Public Use
  Company Number: ES-009507513-1810ESP009914

PATIENT
  Age: 78 Year
  Sex: Female

DRUGS (1)
  1. ASMANEX [Suspect]
     Active Substance: MOMETASONE FUROATE
     Indication: CHRONIC OBSTRUCTIVE PULMONARY DISEASE
     Dosage: UNK, STRENGTH: 200 MICROGRAM

REACTIONS (4)
  - Wrong technique in product usage process [Unknown]
  - Product label confusion [Unknown]
  - Product use in unapproved indication [Unknown]
  - No adverse event [Unknown]
